FAERS Safety Report 18994703 (Version 1)
Quarter: 2021Q1

REPORT INFORMATION
  Report Type: Spontaneous
  Country: PL (occurrence: PL)
  Receive Date: 20210311
  Receipt Date: 20210311
  Transmission Date: 20210420
  Serious: Yes (Other)
  Sender: FDA-Public Use
  Company Number: PL-SUN PHARMACEUTICAL INDUSTRIES LTD-2021RR-285048

PATIENT
  Age: 43 Year
  Sex: Male

DRUGS (3)
  1. DIVALPROEX [Suspect]
     Active Substance: DIVALPROEX SODIUM
     Indication: AFFECTIVE DISORDER
     Dosage: 1000 MILLIGRAM, DAILY
     Route: 065
  2. ESCITALOPRAM [Suspect]
     Active Substance: ESCITALOPRAM OXALATE
     Indication: AFFECTIVE DISORDER
     Dosage: 40 MILLIGRAM, DAILY
     Route: 065
  3. LITHIUM. [Concomitant]
     Active Substance: LITHIUM
     Indication: AFFECTIVE DISORDER
     Dosage: 750 MILLIGRAM, DAILY
     Route: 065

REACTIONS (4)
  - Drug tolerance [Unknown]
  - Sexual dysfunction [Unknown]
  - Treatment noncompliance [Unknown]
  - Gastrointestinal disorder [Unknown]
